FAERS Safety Report 4335787-X (Version None)
Quarter: 2004Q2

REPORT INFORMATION
  Report Type: 
  Country: None (occurrence: None)
  Receive Date: 20040406
  Receipt Date: 20040324
  Transmission Date: 20050107
  Serious: Yes (Death)
  Sender: FDA-Public Use
  Company Number: 163-20785-04030643

PATIENT

DRUGS (2)
  1. THALOMID [Suspect]
     Indication: WALDENSTROM'S MACROGLOBULINAEMIA
     Dosage: ORAL
     Route: 048
  2. RITUXIMAB (RITUXIMAB) [Suspect]
     Indication: WALDENSTROM'S MACROGLOBULINAEMIA

REACTIONS (2)
  - CARDIAC ARREST [None]
  - SUDDEN DEATH [None]
